FAERS Safety Report 11428995 (Version 1)
Quarter: 2015Q3

REPORT INFORMATION
  Report Type: Spontaneous
  Country: US (occurrence: US)
  Receive Date: 20150828
  Receipt Date: 20150828
  Transmission Date: 20151125
  Serious: No
  Sender: FDA-Public Use
  Company Number: US-ROCHE-1176373

PATIENT
  Age: 47 Year
  Sex: Female

DRUGS (3)
  1. RIBAVIRIN. [Suspect]
     Active Substance: RIBAVIRIN
     Indication: CHRONIC HEPATITIS C
     Dosage: DIVIDED DOSE
     Route: 065
     Dates: start: 20120116, end: 20121212
  2. PEGASYS [Suspect]
     Active Substance: PEGINTERFERON ALFA-2A
     Indication: CHRONIC HEPATITIS C
     Route: 058
     Dates: start: 20120116, end: 20121212
  3. TELAPREVIR [Suspect]
     Active Substance: TELAPREVIR
     Indication: CHRONIC HEPATITIS C
     Route: 065
     Dates: start: 20120116

REACTIONS (10)
  - Pruritus [Recovering/Resolving]
  - Pain in extremity [Unknown]
  - Burning sensation [Unknown]
  - Headache [Recovering/Resolving]
  - Weight decreased [Unknown]
  - Paraesthesia [Not Recovered/Not Resolved]
  - Decreased appetite [Unknown]
  - Skin discolouration [Unknown]
  - Treatment failure [Unknown]
  - Rash [Unknown]

NARRATIVE: CASE EVENT DATE: 201205
